FAERS Safety Report 6699279-5 (Version None)
Quarter: 2010Q2

REPORT INFORMATION
  Report Type: 
  Country: None (occurrence: None)
  Receive Date: 20100427
  Receipt Date: 20100415
  Transmission Date: 20101027
  Serious: Yes (Other)
  Sender: FDA-Public Use
  Company Number: PHHY2010US24724

PATIENT
  Sex: Female

DRUGS (6)
  1. AREDIA [Suspect]
     Dosage: UNK
  2. THALOMID [Suspect]
     Indication: MULTIPLE MYELOMA
     Dosage: 200 MG DAILY
     Route: 048
     Dates: start: 20001101
  3. THALOMID [Suspect]
     Dosage: 100 MG DAILY
     Route: 048
     Dates: start: 20010801
  4. VELCADE [Suspect]
     Dosage: 1.3 MG/M2 ON DAY 1, 4, 8, 11
     Dates: start: 20040525
  5. DECADRON [Concomitant]
     Dosage: 40 MG (DAILY X 4, MONTHLY)
     Dates: start: 20000823
  6. STEROIDS NOS [Concomitant]
     Dosage: UNK
     Dates: start: 19980130

REACTIONS (8)
  - DEEP VEIN THROMBOSIS [None]
  - JAW FRACTURE [None]
  - NEUROPATHY PERIPHERAL [None]
  - OSTEOMYELITIS [None]
  - OSTEONECROSIS [None]
  - PARAESTHESIA [None]
  - PROTEIN URINE PRESENT [None]
  - PULMONARY EMBOLISM [None]
